FAERS Safety Report 10724374 (Version 1)
Quarter: 2015Q1

REPORT INFORMATION
  Report Type: Spontaneous
  Country: US (occurrence: US)
  Receive Date: 20150120
  Receipt Date: 20150120
  Transmission Date: 20150721
  Serious: Yes (Death)
  Sender: FDA-Public Use
  Company Number: US-ASTELLAS-2015US001599

PATIENT
  Age: 35 Year
  Sex: Female

DRUGS (1)
  1. ASTAGRAF XL [Suspect]
     Active Substance: TACROLIMUS
     Indication: KIDNEY TRANSPLANT REJECTION
     Route: 048
     Dates: start: 20140219

REACTIONS (1)
  - Death [Fatal]

NARRATIVE: CASE EVENT DATE: 20141024
